FAERS Safety Report 7707791-2 (Version None)
Quarter: 2011Q3

REPORT INFORMATION
  Report Type: 
  Country: None (occurrence: None)
  Receive Date: 20110824
  Receipt Date: 20110818
  Transmission Date: 20111222
  Serious: Yes (Hospitalization)
  Sender: FDA-Public Use
  Company Number: FR-SANOFI-AVENTIS-2011SA052811

PATIENT
  Age: 91 Year
  Sex: Male

DRUGS (8)
  1. TEGRETOL [Interacting]
     Route: 048
     Dates: start: 20110401
  2. LAMALINE [Concomitant]
     Route: 065
     Dates: start: 20110601
  3. AUGMENTIN '125' [Concomitant]
     Route: 065
     Dates: start: 20110601
  4. ALFUZOSIN HCL [Concomitant]
     Route: 048
  5. SIMVASTATIN [Concomitant]
     Route: 048
  6. PLAVIX [Suspect]
     Route: 048
     Dates: start: 20110301, end: 20110607
  7. PERINDOPRIL [Concomitant]
     Route: 048
  8. PARACETAMOL [Concomitant]
     Route: 065
     Dates: start: 20110601

REACTIONS (2)
  - DRUG INTERACTION [None]
  - SUBDURAL HAEMATOMA [None]
